FAERS Safety Report 4430680-6 (Version None)
Quarter: 2004Q3

REPORT INFORMATION
  Report Type: 
  Country: None (occurrence: None)
  Receive Date: 20040819
  Receipt Date: 20040819
  Transmission Date: 20050211
  Serious: Yes (Hospitalization)
  Sender: FDA-Public Use
  Company Number: None

PATIENT
  Age: 50 Year
  Sex: Female
  Weight: 75.7507 kg

DRUGS (2)
  1. TEMAZEPAM [Suspect]
     Dosage: 15 MG TO 30 MG QHS PRN
  2. ALPRAZOLAM [Suspect]
     Dosage: 1 MG TID PRN ANXIETY

REACTIONS (4)
  - ADRENERGIC SYNDROME [None]
  - CONVULSION [None]
  - FEELING JITTERY [None]
  - HYPERTENSION [None]
